FAERS Safety Report 16591423 (Version 1)
Quarter: 2019Q3

REPORT INFORMATION
  Report Type: Spontaneous
  Country: US (occurrence: US)
  Receive Date: 20190718
  Receipt Date: 20190718
  Transmission Date: 20191004
  Serious: No
  Sender: FDA-Public Use
  Company Number: US-PFIZER INC-2019299746

PATIENT
  Age: 78 Year
  Sex: Female

DRUGS (1)
  1. TAFAMIDIS [Suspect]
     Active Substance: TAFAMIDIS MEGLUMINE
     Indication: AMYLOIDOSIS
     Dosage: 61 MG, UNK
     Dates: start: 20190410

REACTIONS (8)
  - Wheezing [Unknown]
  - Joint injury [Unknown]
  - Asthenia [Unknown]
  - Arthritis [Unknown]
  - Arthralgia [Unknown]
  - Abdominal pain upper [Unknown]
  - Condition aggravated [Unknown]
  - Osteoarthritis [Unknown]
